FAERS Safety Report 5391786-0 (Version None)
Quarter: 2007Q3

REPORT INFORMATION
  Report Type: 
  Country: None (occurrence: None)
  Receive Date: 20070717
  Receipt Date: 20070702
  Transmission Date: 20080115
  Serious: Yes (Death)
  Sender: FDA-Public Use
  Company Number: 2007RR-08441

PATIENT
  Age: 36 Year
  Sex: Female
  Weight: 114 kg

DRUGS (7)
  1. FLUOXETINE [Suspect]
     Dosage: 40 MG, QD
  2. PAROXETINE [Suspect]
     Dosage: 25 MG, QD
  3. CLOZARIL [Suspect]
     Dosage: 350 MG, QD
  4. LEVOTHYROXINE SODIUM [Concomitant]
  5. LITHIUM CARBONATE [Concomitant]
  6. OMEPRAZOLE [Concomitant]
  7. ZOPICLONE (ZOPICLONE) [Concomitant]

REACTIONS (3)
  - DIARRHOEA [None]
  - FALL [None]
  - SUDDEN DEATH [None]
